FAERS Safety Report 5754326-X (Version None)
Quarter: 2008Q2

REPORT INFORMATION
  Report Type: 
  Country: None (occurrence: None)
  Receive Date: 20080530
  Receipt Date: 20080523
  Transmission Date: 20081010
  Serious: Yes (Other)
  Sender: FDA-Public Use
  Company Number: CA-ABBOTT-08P-028-0453691-00

PATIENT
  Sex: Female
  Weight: 24.062 kg

DRUGS (1)
  1. HUMIRA [Suspect]
     Indication: CROHN'S DISEASE
     Route: 058
     Dates: start: 20070622, end: 20080401

REACTIONS (2)
  - DRUG INEFFECTIVE [None]
  - SURGERY [None]
